FAERS Safety Report 20914905 (Version 3)
Quarter: 2022Q3

REPORT INFORMATION
  Report Type: Spontaneous
  Country: US (occurrence: US)
  Receive Date: 20220604
  Receipt Date: 20220720
  Transmission Date: 20221027
  Serious: Yes (Other)
  Sender: FDA-Public Use
  Company Number: US-SA-SAC20220526001385

PATIENT
  Age: 63 Year
  Sex: Female

DRUGS (6)
  1. CEREZYME [Suspect]
     Active Substance: IMIGLUCERASE
     Indication: Gaucher^s disease
     Dosage: 3200 IU, Q4W
     Route: 042
     Dates: start: 20180117
  2. DIAZEPAM [Concomitant]
     Active Substance: DIAZEPAM
     Dosage: 2 MG, PRN
  3. ERGOCALCIFEROL D2 [Concomitant]
  4. LOSARTAN [Concomitant]
     Active Substance: LOSARTAN
     Dosage: 25 MG, QD
     Route: 048
  5. MECLIZINE [Concomitant]
     Active Substance: MECLIZINE HYDROCHLORIDE
     Dosage: 25 MG, PRN
  6. ONDANSETRON [Concomitant]
     Active Substance: ONDANSETRON
     Dosage: 4 MG, PRN

REACTIONS (7)
  - Deafness neurosensory [Recovering/Resolving]
  - Vertigo [Not Recovered/Not Resolved]
  - Tinnitus [Unknown]
  - Myofascial pain syndrome [Unknown]
  - Temporomandibular joint syndrome [Unknown]
  - Headache [Unknown]
  - Dizziness [Recovering/Resolving]

NARRATIVE: CASE EVENT DATE: 20220101
